FAERS Safety Report 14074582 (Version 2)
Quarter: 2017Q4

REPORT INFORMATION
  Report Type: Report from Study
  Country: CN (occurrence: CN)
  Receive Date: 20171010
  Receipt Date: 20171108
  Transmission Date: 20180321
  Serious: Yes (Hospitalization, Other)
  Sender: FDA-Public Use
  Company Number: PHHY2016CN114957

PATIENT
  Age: 18 Year
  Sex: Male
  Weight: 49 kg

DRUGS (9)
  1. FU MEI XIN//FOSFOMYCIN SODIUM [Concomitant]
     Indication: PROPHYLAXIS AGAINST TRANSPLANT REJECTION
     Dosage: 5 MG, UNK
     Route: 065
     Dates: start: 20160718, end: 20160728
  2. FU MEI XIN//FOSFOMYCIN SODIUM [Concomitant]
     Dosage: 4 MG, UNK
     Route: 065
     Dates: start: 20160729, end: 20160807
  3. MYCOPHENOLATE MOFETIL. [Suspect]
     Active Substance: MYCOPHENOLATE MOFETIL
     Indication: PROPHYLAXIS AGAINST TRANSPLANT REJECTION
  4. MYCOPHENOLATE MOFETIL. [Suspect]
     Active Substance: MYCOPHENOLATE MOFETIL
     Indication: RENAL TRANSPLANT
     Dosage: 1500 MG, UNK
     Route: 065
     Dates: start: 20160712
  5. PREDNISONE. [Concomitant]
     Active Substance: PREDNISONE
     Indication: PROPHYLAXIS AGAINST TRANSPLANT REJECTION
     Dosage: 30 MG, UNK
     Route: 065
     Dates: start: 20160715, end: 20160819
  6. PREDNISONE. [Concomitant]
     Active Substance: PREDNISONE
     Dosage: 25 MG, UNK
     Route: 065
     Dates: start: 20160820
  7. MYFORTIC [Suspect]
     Active Substance: MYCOPHENOLATE SODIUM
     Indication: RENAL TRANSPLANT
     Dosage: UNK
     Route: 048
  8. MYFORTIC [Suspect]
     Active Substance: MYCOPHENOLATE SODIUM
     Indication: PROPHYLAXIS AGAINST TRANSPLANT REJECTION
  9. FU MEI XIN//FOSFOMYCIN SODIUM [Concomitant]
     Dosage: 3.5 MG, UNK
     Route: 065
     Dates: start: 20160808

REACTIONS (3)
  - Effusion [Unknown]
  - Impaired healing [Recovered/Resolved]
  - Drug-induced liver injury [Recovered/Resolved]

NARRATIVE: CASE EVENT DATE: 20160720
